FAERS Safety Report 5003481-8 (Version None)
Quarter: 2006Q1

REPORT INFORMATION
  Report Type: 
  Country: None (occurrence: None)
  Receive Date: 20060317
  Receipt Date: 20060110
  Transmission Date: 20060701
  Serious: Yes (Hospitalization)
  Sender: FDA-Public Use
  Company Number: US-JNJFOC-20060103906

PATIENT
  Age: 31 Year
  Sex: Female
  Weight: 95.2554 kg

DRUGS (4)
  1. ORTHO EVRA [Suspect]
     Dosage: TRANSDERMAL
     Route: 062
     Dates: start: 20040101, end: 20050101
  2. WELLBUTRIN [Concomitant]
  3. HYDROCODONE BITARTRATE [Concomitant]
  4. ENDOCET (OXYCOCET) [Concomitant]

REACTIONS (1)
  - PELVIC VENOUS THROMBOSIS [None]
